FAERS Safety Report 4957397-3 (Version None)
Quarter: 2006Q1

REPORT INFORMATION
  Report Type: 
  Country: None (occurrence: None)
  Receive Date: 20060327
  Receipt Date: 20060315
  Transmission Date: 20060701
  Serious: Yes (Hospitalization, Other)
  Sender: FDA-Public Use
  Company Number: 2006036028

PATIENT
  Age: 40 Year
  Sex: Female
  Weight: 63.5036 kg

DRUGS (3)
  1. ROGAINE [Suspect]
     Indication: ALOPECIA
     Dosage: 1 ML TWICE A DAY, TOPICAL
     Route: 061
     Dates: start: 20051201, end: 20060313
  2. ZOLPIDEM TARTRATE [Concomitant]
  3. TRAMADOL HCL [Concomitant]

REACTIONS (6)
  - ALOPECIA [None]
  - ASTHMA [None]
  - COLLAPSE OF LUNG [None]
  - CONDITION AGGRAVATED [None]
  - JOINT SURGERY [None]
  - THYROID DISORDER [None]
